FAERS Safety Report 15488060 (Version 1)
Quarter: 2018Q4

REPORT INFORMATION
  Report Type: Spontaneous
  Country: US (occurrence: US)
  Receive Date: 20181011
  Receipt Date: 20181011
  Transmission Date: 20190205
  Serious: Yes (Death, Hospitalization)
  Sender: FDA-Public Use
  Company Number: US-HIKMA PHARMACEUTICALS USA INC.-US-H14001-18-07735

PATIENT
  Age: 64 Year
  Sex: Male

DRUGS (1)
  1. CEFOXITIN [Suspect]
     Active Substance: CEFOXITIN SODIUM
     Indication: ANTIBIOTIC PROPHYLAXIS
     Route: 065

REACTIONS (5)
  - Clostridium difficile infection [Fatal]
  - Megacolon [Fatal]
  - Septic shock [Fatal]
  - Pseudomembranous colitis [Fatal]
  - Sepsis [Fatal]
